FAERS Safety Report 11987368 (Version 1)
Quarter: 2016Q1

REPORT INFORMATION
  Report Type: Spontaneous
  Country: US (occurrence: None)
  Receive Date: 20160201
  Receipt Date: 20160201
  Transmission Date: 20160526
  Serious: Yes (Life-Threatening, Hospitalization)
  Sender: FDA-Public Use
  Company Number: None

PATIENT
  Age: 41 Year
  Sex: Female
  Weight: 52.62 kg

DRUGS (1)
  1. MINOCYCLINE [Suspect]
     Active Substance: MINOCYCLINE\MINOCYCLINE HYDROCHLORIDE
     Indication: LYME DISEASE
     Route: 048
     Dates: start: 20151102, end: 20151214

REACTIONS (9)
  - Dehydration [None]
  - Headache [None]
  - Musculoskeletal stiffness [None]
  - Chest pain [None]
  - Dysarthria [None]
  - Vision blurred [None]
  - Dyspnoea [None]
  - Confusional state [None]
  - Gait disturbance [None]

NARRATIVE: CASE EVENT DATE: 20151106
